FAERS Safety Report 17867073 (Version 1)
Quarter: 2020Q2

REPORT INFORMATION
  Report Type: Spontaneous
  Country: US (occurrence: US)
  Receive Date: 20200605
  Receipt Date: 20200605
  Transmission Date: 20200714
  Serious: No
  Sender: FDA-Public Use
  Company Number: US-ELI_LILLY_AND_COMPANY-US202005005284

PATIENT
  Age: 42 Year
  Sex: Female

DRUGS (6)
  1. EMGALITY [Suspect]
     Active Substance: GALCANEZUMAB-GNLM
     Dosage: 120 DOSAGE FORM, UNKNOWN
     Route: 058
  2. EMGALITY [Suspect]
     Active Substance: GALCANEZUMAB-GNLM
     Indication: PRODUCT USED FOR UNKNOWN INDICATION
     Dosage: 120 MG, UNKNOWN
     Route: 058
     Dates: start: 201909
  3. TOPAMAX [Concomitant]
     Active Substance: TOPIRAMATE
     Indication: MIGRAINE
  4. EMGALITY [Suspect]
     Active Substance: GALCANEZUMAB-GNLM
     Dosage: 120 DOSAGE FORM, UNKNOWN
     Route: 058
  5. FIORICET [Concomitant]
     Active Substance: ACETAMINOPHEN\BUTALBITAL\CAFFEINE
     Indication: MIGRAINE
  6. EMGALITY [Suspect]
     Active Substance: GALCANEZUMAB-GNLM
     Indication: PRODUCT USED FOR UNKNOWN INDICATION
     Dosage: 120 MG, UNKNOWN
     Route: 058
     Dates: start: 201909

REACTIONS (2)
  - Injection site pain [Unknown]
  - Underdose [Unknown]

NARRATIVE: CASE EVENT DATE: 202004
